FAERS Safety Report 9188347 (Version 2)
Quarter: 2013Q1

REPORT INFORMATION
  Report Type: Report from Study
  Country: CA (occurrence: CA)
  Receive Date: 20130325
  Receipt Date: 20130328
  Transmission Date: 20140127
  Serious: Yes (Other)
  Sender: FDA-Public Use
  Company Number: CA-JNJFOC-20130311049

PATIENT
  Age: 75 Year
  Sex: Female
  Weight: 90.72 kg

DRUGS (17)
  1. STELARA [Suspect]
     Indication: PSORIASIS
     Route: 058
     Dates: start: 20130305
  2. TIMOPTIC [Concomitant]
  3. TEMAZEPAM [Concomitant]
  4. SIMVASTATIN [Concomitant]
  5. SERTRALINE [Concomitant]
  6. RAMIPRIL [Concomitant]
  7. LANSOPRAZOLE [Concomitant]
  8. HYDROCHLOROTHIAZIDE [Concomitant]
  9. FLECAINIDE [Concomitant]
     Route: 058
  10. AMLODIPINE [Concomitant]
     Route: 058
  11. ENTROPHEN [Concomitant]
     Route: 058
  12. DIGOXIN [Concomitant]
  13. SLOW K [Concomitant]
  14. LORAZEPAM [Concomitant]
  15. ATENOLOL [Concomitant]
  16. FOLIC ACID [Concomitant]
  17. NITRO SPRAY [Concomitant]

REACTIONS (3)
  - Chest pain [Not Recovered/Not Resolved]
  - Dizziness [Not Recovered/Not Resolved]
  - Arthralgia [Unknown]
